FAERS Safety Report 5384018-0 (Version None)
Quarter: 2007Q3

REPORT INFORMATION
  Report Type: 
  Country: None (occurrence: None)
  Receive Date: 20070706
  Receipt Date: 20060809
  Transmission Date: 20080115
  Serious: Yes (Hospitalization, Other)
  Sender: FDA-Public Use
  Company Number: US-2006-022436

PATIENT
  Age: 81 Year
  Sex: Male

DRUGS (2)
  1. CAMPATH [Suspect]
     Indication: T-CELL LYMPHOMA
     Dosage: 30 MG IVP ; 30 MG, 3X/WEEK, SUBCUTANEOUS
     Route: 058
     Dates: start: 20060809, end: 20060809
  2. CAMPATH [Suspect]
     Indication: T-CELL LYMPHOMA
     Dosage: 30 MG IVP ; 30 MG, 3X/WEEK, SUBCUTANEOUS
     Route: 058
     Dates: start: 20060814

REACTIONS (3)
  - BLOOD PRESSURE DECREASED [None]
  - CHILLS [None]
  - INCORRECT ROUTE OF DRUG ADMINISTRATION [None]
